FAERS Safety Report 5197078-7 (Version None)
Quarter: 2007Q1

REPORT INFORMATION
  Report Type: 
  Country: None (occurrence: None)
  Receive Date: 20070103
  Receipt Date: 20061221
  Transmission Date: 20070707
  Serious: Yes (Other)
  Sender: FDA-Public Use
  Company Number: PHBS2006JP19876

PATIENT
  Age: 81 Year

DRUGS (1)
  1. TOFRANIL [Suspect]
     Dosage: 25 MG, BID
     Route: 048
     Dates: start: 20061208

REACTIONS (1)
  - HYPERKALAEMIA [None]
